FAERS Safety Report 19954025 (Version 1)
Quarter: 2021Q4

REPORT INFORMATION
  Report Type: Spontaneous
  Country: US (occurrence: US)
  Receive Date: 20211011
  Receipt Date: 20211011
  Transmission Date: 20220303
  Serious: No
  Sender: FDA-Public Use
  Company Number: None

PATIENT
  Age: 71 Year
  Sex: Female
  Weight: 94.35 kg

DRUGS (1)
  1. BENLYSTA [Suspect]
     Active Substance: BELIMUMAB
     Indication: Systemic lupus erythematosus
     Dosage: ?          OTHER FREQUENCY:1HRATWK2AND4ASDIR ;
     Route: 042
     Dates: start: 202010

REACTIONS (2)
  - Therapy interrupted [None]
  - COVID-19 [None]
